FAERS Safety Report 5740036-1 (Version None)
Quarter: 2008Q2

REPORT INFORMATION
  Report Type: 
  Country: None (occurrence: None)
  Receive Date: 20080513
  Receipt Date: 20080428
  Transmission Date: 20081010
  Serious: Yes (Other)
  Sender: FDA-Public Use
  Company Number: 2008000993

PATIENT
  Age: 55 Year
  Sex: Male

DRUGS (3)
  1. ERLOTINIB(ERLOTINIB HCL) (TABLET) (ERLOTINIB HCL) [Suspect]
     Indication: LUNG ADENOCARCINOMA
     Dosage: (150 MG,QD), ORAL
     Route: 048
     Dates: start: 20080305
  2. JUZENTAIHOTO(JUZENTAIHOTO) [Concomitant]
  3. ALLOPURINOL [Concomitant]

REACTIONS (1)
  - PLATELET COUNT DECREASED [None]
